FAERS Safety Report 17349354 (Version 6)
Quarter: 2020Q1

REPORT INFORMATION
  Report Type: Report from Study
  Country: FR (occurrence: FR)
  Receive Date: 20200130
  Receipt Date: 20200325
  Transmission Date: 20200409
  Serious: Yes (Hospitalization, Other)
  Sender: FDA-Public Use
  Company Number: FR-MYLANLABS-2020M1010432

PATIENT
  Age: 51 Year
  Sex: Female
  Weight: 76 kg

DRUGS (20)
  1. TADALAFIL. [Suspect]
     Active Substance: TADALAFIL
     Dosage: UNK
     Route: 048
     Dates: start: 201909
  2. UPTRAVI [Suspect]
     Active Substance: SELEXIPAG
     Dosage: 2000 MICROGRAM, QD (1000 MCG, BID)
     Route: 048
     Dates: start: 20191019
  3. UPTRAVI [Suspect]
     Active Substance: SELEXIPAG
     Dosage: 1600 MICROGRAM, QD (800 MCG, BID)
     Route: 048
     Dates: start: 20191021
  4. OXYGEN. [Concomitant]
     Active Substance: OXYGEN
     Dosage: 15 UNK
     Route: 055
  5. TADALAFIL. [Suspect]
     Active Substance: TADALAFIL
     Indication: PULMONARY ARTERIAL HYPERTENSION
     Dosage: UNK
     Route: 048
     Dates: end: 201909
  6. TRACLEER [Suspect]
     Active Substance: BOSENTAN
     Indication: PULMONARY ARTERIAL HYPERTENSION
     Dosage: UNK
     Route: 048
     Dates: start: 201909
  7. UPTRAVI [Suspect]
     Active Substance: SELEXIPAG
     Dosage: 2000 MICROGRAM, QD (1000 MCG, BID)
     Route: 048
     Dates: start: 20191119
  8. UPTRAVI [Suspect]
     Active Substance: SELEXIPAG
     Dosage: 3200 MICROGRAM, QD (1600 MCG, BID)
     Route: 048
     Dates: start: 20191217
  9. UPTRAVI [Suspect]
     Active Substance: SELEXIPAG
     Dosage: 800 MICROGRAM, QD (400 MCG, BID)
     Route: 048
     Dates: start: 20190928
  10. UPTRAVI [Suspect]
     Active Substance: SELEXIPAG
     Dosage: 2800 MICROGRAM, QD (1400 MCG, BID)
     Route: 048
     Dates: start: 20191210
  11. OXYGEN. [Concomitant]
     Active Substance: OXYGEN
     Dosage: 2 LITER
     Route: 055
  12. UPTRAVI [Suspect]
     Active Substance: SELEXIPAG
     Dosage: 1600 MICROGRAM, QD (800 MCG, BID)
     Route: 048
     Dates: start: 20191012
  13. TRACLEER [Suspect]
     Active Substance: BOSENTAN
     Dosage: UNK
     Route: 048
     Dates: end: 201909
  14. UPTRAVI [Suspect]
     Active Substance: SELEXIPAG
     Dosage: 2400 MICROGRAM, QD (1200 MCG, BID)
     Route: 048
     Dates: start: 20191126
  15. TRACLEER [Suspect]
     Active Substance: BOSENTAN
     Dosage: UNK
     Route: 048
     Dates: start: 20191115
  16. UPTRAVI [Suspect]
     Active Substance: SELEXIPAG
     Indication: PULMONARY ARTERIAL HYPERTENSION
     Dosage: 400 MICROGRAM, QD (200 MCG, BID)
     Route: 048
     Dates: start: 20190921
  17. UPTRAVI [Suspect]
     Active Substance: SELEXIPAG
     Dosage: 2800 MICROGRAM, QD (1400 MCG, BID)
     Route: 048
     Dates: start: 20200128, end: 20200213
  18. TADALAFIL. [Suspect]
     Active Substance: TADALAFIL
     Dosage: UNK
     Route: 048
     Dates: start: 20191115
  19. UPTRAVI [Suspect]
     Active Substance: SELEXIPAG
     Dosage: 1200 MICROGRAM, QD (600 MCG, BID)
     Route: 048
     Dates: start: 20191005
  20. OXYGEN. [Concomitant]
     Active Substance: OXYGEN
     Dosage: 12 UNK

REACTIONS (17)
  - Cough [Not Recovered/Not Resolved]
  - Flushing [Recovered/Resolved]
  - Eye pain [Recovered/Resolved]
  - Dyspnoea [Recovering/Resolving]
  - Product prescribing error [Recovered/Resolved]
  - Pain in jaw [Not Recovered/Not Resolved]
  - Headache [Not Recovered/Not Resolved]
  - Throat irritation [Unknown]
  - Diarrhoea [Not Recovered/Not Resolved]
  - Malaise [Not Recovered/Not Resolved]
  - Fatigue [Not Recovered/Not Resolved]
  - Abdominal pain upper [Not Recovered/Not Resolved]
  - Nausea [Not Recovered/Not Resolved]
  - Blood potassium increased [Not Recovered/Not Resolved]
  - Sleep disorder [Not Recovered/Not Resolved]
  - Productive cough [Unknown]
  - Myalgia [Not Recovered/Not Resolved]

NARRATIVE: CASE EVENT DATE: 20190921
